FAERS Safety Report 17022755 (Version 9)
Quarter: 2020Q1

REPORT INFORMATION
  Report Type: Report from Study
  Country: KR (occurrence: KR)
  Receive Date: 20191112
  Receipt Date: 20200212
  Transmission Date: 20200409
  Serious: Yes (Hospitalization)
  Sender: FDA-Public Use
  Company Number: KR-EISAI MEDICAL RESEARCH-EC-2019-065190

PATIENT
  Age: 57 Year
  Sex: Female
  Weight: 43.05 kg

DRUGS (10)
  1. PEMBROLIZUMAB. [Suspect]
     Active Substance: PEMBROLIZUMAB
     Indication: ENDOMETRIAL CANCER
     Route: 041
     Dates: start: 20190114, end: 20190521
  2. SYNTHYROXINE [Concomitant]
     Active Substance: LEVOTHYROXINE SODIUM
     Dates: start: 20190507
  3. HEXAMEDINE [Concomitant]
     Dates: start: 20190521
  4. PEMBROLIZUMAB. [Suspect]
     Active Substance: PEMBROLIZUMAB
     Route: 041
     Dates: start: 20190611, end: 20190611
  5. D3 BASE [Concomitant]
     Dates: start: 20191017
  6. LENVATINIB [Suspect]
     Active Substance: LENVATINIB
     Indication: ENDOMETRIAL CANCER
     Dosage: STARTING DOSE 20 MILLIGRAM, (FLUCTUATED DOSE)
     Route: 048
     Dates: start: 20190114, end: 20191101
  7. STILNOX [Concomitant]
     Active Substance: ZOLPIDEM TARTRATE
     Dates: start: 20190411
  8. VITAMEDIN CAPSULES [Concomitant]
     Dates: start: 20191017
  9. LENVATINIB [Suspect]
     Active Substance: LENVATINIB
     Route: 048
     Dates: start: 20191102, end: 20191102
  10. KETORACIN [Concomitant]
     Dates: start: 20190726

REACTIONS (1)
  - Intestinal perforation [Recovered/Resolved]

NARRATIVE: CASE EVENT DATE: 20191102
